FAERS Safety Report 22088822 (Version 1)
Quarter: 2023Q1

REPORT INFORMATION
  Report Type: Spontaneous
  Country: US (occurrence: None)
  Receive Date: 20230310
  Receipt Date: 20230310
  Transmission Date: 20230417
  Serious: Yes (Hospitalization)
  Sender: FDA-Public Use
  Company Number: None

PATIENT
  Age: 59 Year
  Sex: Male

DRUGS (3)
  1. CELEXA [Suspect]
     Active Substance: CITALOPRAM HYDROBROMIDE
     Indication: Depression
     Dosage: FREQUENCY : DAILY;?
     Route: 048
  2. OZEMPIC [Concomitant]
     Active Substance: SEMAGLUTIDE
  3. HUMALOG [Concomitant]
     Active Substance: INSULIN LISPRO

REACTIONS (10)
  - Mania [None]
  - Therapy cessation [None]
  - Personality change [None]
  - Insomnia [None]
  - Hypersexuality [None]
  - Chest pain [None]
  - Dizziness [None]
  - Vision blurred [None]
  - Headache [None]
  - Refusal of treatment by patient [None]

NARRATIVE: CASE EVENT DATE: 20230309
